FAERS Safety Report 15803725 (Version 2)
Quarter: 2019Q1

REPORT INFORMATION
  Report Type: Spontaneous
  Country: US (occurrence: US)
  Receive Date: 20190109
  Receipt Date: 20190123
  Transmission Date: 20190417
  Serious: Yes (Hospitalization, Other)
  Sender: FDA-Public Use
  Company Number: US-PFIZER INC-2019008498

PATIENT
  Age: 80 Year
  Sex: Male
  Weight: 70 kg

DRUGS (1)
  1. XALKORI [Suspect]
     Active Substance: CRIZOTINIB
     Indication: LUNG CANCER METASTATIC
     Dosage: 250 MG, DAILY
     Route: 048
     Dates: start: 20181208, end: 201901

REACTIONS (4)
  - Oedema [Unknown]
  - Spinal fracture [Unknown]
  - Peripheral swelling [Unknown]
  - Dehydration [Unknown]

NARRATIVE: CASE EVENT DATE: 201812
